FAERS Safety Report 19820838 (Version 1)
Quarter: 2021Q3

REPORT INFORMATION
  Report Type: Spontaneous
  Country: US (occurrence: US)
  Receive Date: 20210913
  Receipt Date: 20210913
  Transmission Date: 20211014
  Serious: No
  Sender: FDA-Public Use
  Company Number: US-SA-2021SA297146

PATIENT

DRUGS (1)
  1. SELSUN BLUE MEDICATED [Suspect]
     Active Substance: SELENIUM SULFIDE
     Route: 061

REACTIONS (2)
  - Hair texture abnormal [Unknown]
  - Skin exfoliation [Unknown]
